FAERS Safety Report 4544872-9 (Version None)
Quarter: 2005Q1

REPORT INFORMATION
  Report Type: 
  Country: None (occurrence: None)
  Receive Date: 20050103
  Receipt Date: 20050103
  Transmission Date: 20050727
  Serious: Yes (Life-Threatening)
  Sender: FDA-Public Use
  Company Number: None

PATIENT
  Sex: Female

DRUGS (1)
  1. HYDROMORPHONE   1 MG [Suspect]
     Indication: PAIN
     Dosage: 1 MG/HR   BASAL RATE   INTRAVENOU
     Route: 042
     Dates: start: 20041207, end: 20041208

REACTIONS (3)
  - HYPERTENSION [None]
  - RESPIRATORY DEPRESSION [None]
  - TACHYCARDIA [None]
